FAERS Safety Report 9964219 (Version 2)
Quarter: 2014Q1

REPORT INFORMATION
  Report Type: Report from Study
  Country: CA (occurrence: CA)
  Receive Date: 20140305
  Receipt Date: 20140305
  Transmission Date: 20141002
  Serious: Yes (Death)
  Sender: FDA-Public Use
  Company Number: PHHY2013CA079992

PATIENT
  Sex: Male

DRUGS (7)
  1. AFINITOR [Suspect]
     Indication: METASTATIC RENAL CELL CARCINOMA
     Dosage: 2.5 MG
     Route: 048
  2. HYDROCORTISONE [Concomitant]
  3. DOCETAXEL [Concomitant]
  4. PREDNISONE [Concomitant]
  5. ABIRATERONE [Concomitant]
  6. SUNITINIB [Concomitant]
  7. ENZALUTAMIDE [Concomitant]

REACTIONS (3)
  - Death [Fatal]
  - Leukopenia [Unknown]
  - Anaemia [Unknown]
